FAERS Safety Report 8540624-3 (Version None)
Quarter: 2012Q3

REPORT INFORMATION
  Report Type: 
  Country: None (occurrence: None)
  Receive Date: 20120726
  Receipt Date: 20120716
  Transmission Date: 20120928
  Serious: Yes (Death)
  Sender: FDA-Public Use
  Company Number: ES-BAYER-2012-028868

PATIENT
  Age: 65 Year
  Sex: Male
  Weight: 58.8 kg

DRUGS (10)
  1. VITAMIN K TAB [Suspect]
     Dosage: 100 MG DAILY
     Dates: start: 20110228
  2. SORAFENIB (RAF KINASE INHIBITOR) [Suspect]
     Indication: HEPATIC NEOPLASM MALIGNANT
     Dosage: 400 MG, BID
     Route: 048
     Dates: start: 20110404
  3. PROPRANOLOL HYDROCHLORIDE [Concomitant]
     Indication: GASTROOESOPHAGEAL VARICEAL HAEMORRHAGE PROPHYLAXIS
     Dosage: DAILY DOSE 10 MG
     Route: 048
     Dates: start: 20040909
  4. CLOBETASOL PROPIONATE [Concomitant]
     Indication: PRURITUS
     Dosage: DAILY DOSE 15 G
     Route: 061
     Dates: start: 20110704
  5. OLMESARTAN MEDOXOMIL [Concomitant]
     Indication: HYPERTENSION
     Dosage: DAILY DOSE 10 MG
     Route: 048
     Dates: start: 20110427
  6. ALDACTONE [Concomitant]
     Indication: ASCITES
     Dosage: DAILY DOSE 100 MG
     Route: 048
     Dates: start: 20040602
  7. ANTIHISTAMINES [Concomitant]
     Indication: PRURITUS
     Dosage: DAILY DOSE 20 MG
     Route: 048
     Dates: start: 20110704
  8. LANSOPRAZOLE [Concomitant]
     Indication: GASTROOESOPHAGEAL REFLUX DISEASE
     Dosage: DAILY DOSE 30 MG
     Route: 048
     Dates: start: 20110228
  9. GLIMEPIRIDE [Concomitant]
     Indication: DIABETES MELLITUS
     Dosage: DAILY DOSE 4 MG
     Route: 048
     Dates: start: 20100406
  10. PROPRANOLOL HYDROCHLORIDE [Concomitant]
     Indication: CARDIOVASCULAR EVENT PROPHYLAXIS

REACTIONS (1)
  - MYOCARDIAL INFARCTION [None]
